FAERS Safety Report 23718017 (Version 1)
Quarter: 2024Q2

REPORT INFORMATION
  Report Type: Spontaneous
  Country: US (occurrence: US)
  Receive Date: 20240408
  Receipt Date: 20240408
  Transmission Date: 20240716
  Serious: Yes (Death, Life-Threatening, Hospitalization, Other)
  Sender: FDA-Public Use
  Company Number: None

PATIENT
  Age: 16 Year
  Sex: Male

DRUGS (13)
  1. TACROLIMUS [Suspect]
     Active Substance: TACROLIMUS
     Indication: Immunosuppressant drug therapy
     Dosage: WEANED TO 6-8 NG/ML, WEANED TO A TARGET TROUGH OF 5-8 NG/ML
  2. TACROLIMUS [Suspect]
     Active Substance: TACROLIMUS
     Dosage: INITIAL GOAL TROUGH 10-12?NG/ML
  3. THYMOCYTE IMMUNE GLOBULIN NOS [Suspect]
     Active Substance: THYMOCYTE IMMUNE GLOBULIN NOS
     Indication: Immunosuppressant drug therapy
     Dates: start: 2021
  4. MYCOPHENOLATE MOFETIL [Suspect]
     Active Substance: MYCOPHENOLATE MOFETIL
     Indication: Immunosuppressant drug therapy
     Dosage: FIRST TRANSPLANT
  5. MYCOPHENOLATE MOFETIL [Suspect]
     Active Substance: MYCOPHENOLATE MOFETIL
  6. MYCOPHENOLATE MOFETIL [Suspect]
     Active Substance: MYCOPHENOLATE MOFETIL
     Dosage: FIRST TRANSPLANT
  7. CYCLOSPORINE [Suspect]
     Active Substance: CYCLOSPORINE
     Indication: Immunosuppressant drug therapy
  8. PREDNISONE [Suspect]
     Active Substance: PREDNISONE
     Indication: Immunosuppressant drug therapy
     Dosage: WEANED TO 0.24?MG/KG/ DAY BY 6-MONTH POST-TRANSPLANT
  9. PREDNISONE [Suspect]
     Active Substance: PREDNISONE
     Dosage: WEANED TO 0.24?MG/KG/ DAY BY 6-MONTH POST-TRANSPLANT
  10. METHYLPREDNISOLONE [Suspect]
     Active Substance: METHYLPREDNISOLONE
     Indication: Immunosuppressant drug therapy
     Route: 042
     Dates: start: 2021
  11. VALGANCICLOVIR [Concomitant]
     Active Substance: VALGANCICLOVIR
     Indication: Infection prophylaxis
  12. PENTAMIDINE [Concomitant]
     Active Substance: PENTAMIDINE
     Indication: Antifungal prophylaxis
  13. NYSTATIN [Concomitant]
     Active Substance: NYSTATIN
     Indication: Infection prophylaxis

REACTIONS (9)
  - Nocardiosis [Fatal]
  - Pulmonary nocardiosis [Fatal]
  - Cerebral nocardiosis [Fatal]
  - Intracranial pressure increased [Fatal]
  - Hydrocephalus [Fatal]
  - Pneumonia bacterial [Recovered/Resolved]
  - Human rhinovirus test positive [Recovered/Resolved]
  - Enterovirus infection [Recovered/Resolved]
  - Secondary immunodeficiency [Unknown]
